FAERS Safety Report 5700528-8 (Version None)
Quarter: 2008Q2

REPORT INFORMATION
  Report Type: 
  Country: None (occurrence: None)
  Receive Date: 20080410
  Receipt Date: 20080401
  Transmission Date: 20081010
  Serious: Yes (Other)
  Sender: FDA-Public Use
  Company Number: US-JNJFOC-20080400621

PATIENT
  Age: 41 Year
  Sex: Male
  Weight: 88.45 kg

DRUGS (2)
  1. IMODIUM ADVANCED [Suspect]
     Route: 048
  2. IMODIUM ADVANCED [Suspect]
     Indication: DIARRHOEA
     Dosage: 1-2 CAPLETS AS NECESSARY
     Route: 048

REACTIONS (1)
  - DIARRHOEA [None]
